FAERS Safety Report 9361734 (Version 5)
Quarter: 2013Q3

REPORT INFORMATION
  Report Type: Spontaneous
  Country: JP (occurrence: JP)
  Receive Date: 20130621
  Receipt Date: 20130802
  Transmission Date: 20140515
  Serious: Yes (Other)
  Sender: FDA-Public Use
  Company Number: JP-B.I. PHARMACEUTICALS,INC./RIDGEFIELD-2013-BI-17914YA

PATIENT
  Age: 81 Year
  Sex: Male

DRUGS (9)
  1. HARNAL (TAMSULOSIN) ORODISPERSABLE CR [Suspect]
     Indication: BENIGN PROSTATIC HYPERPLASIA
     Dosage: 0.2 MG
     Route: 048
     Dates: end: 20130614
  2. HARNAL (TAMSULOSIN) ORODISPERSABLE CR [Suspect]
     Dosage: 0.1 MG
     Route: 048
     Dates: start: 20130615
  3. BETANIS TABLET, 25 MG [Suspect]
     Indication: HYPERTONIC BLADDER
     Dosage: 25 MG
     Route: 048
     Dates: start: 20130517, end: 20130614
  4. BETANIS TABLET, 25 MG [Suspect]
     Dosage: 50 MG
     Route: 048
     Dates: start: 20130515, end: 20130516
  5. UNSPECIFIED DRUGS [Concomitant]
  6. FAMOSTAGINE [Concomitant]
     Dosage: FORMULATION: ORODISPERSIBLE CR TABLET
     Route: 048
  7. PLETAAL [Concomitant]
     Dosage: FORMULATION: ORODISPERSIBLE CR TABLET
     Route: 048
  8. BLOPRESS [Concomitant]
  9. ZYLORIC [Concomitant]
     Dates: start: 20130614, end: 20130617

REACTIONS (3)
  - Blood creatinine increased [Not Recovered/Not Resolved]
  - Hepatic function abnormal [Not Recovered/Not Resolved]
  - White blood cell count increased [Recovered/Resolved]
